FAERS Safety Report 11923419 (Version 1)
Quarter: 2016Q1

REPORT INFORMATION
  Report Type: Spontaneous
  Country: DE (occurrence: DE)
  Receive Date: 20160118
  Receipt Date: 20160118
  Transmission Date: 20160526
  Serious: Yes (Hospitalization)
  Sender: FDA-Public Use
  Company Number: DE-ROCHE-1669972

PATIENT
  Age: 50 Year
  Sex: Male

DRUGS (1)
  1. XOLAIR [Suspect]
     Active Substance: OMALIZUMAB
     Indication: ALLERGY TO ARTHROPOD STING
     Route: 030
     Dates: start: 20140305, end: 20140402

REACTIONS (2)
  - Malignant melanoma [Recovered/Resolved]
  - Dysplastic naevus syndrome [Recovered/Resolved]

NARRATIVE: CASE EVENT DATE: 20151207
